FAERS Safety Report 5742213-2 (Version None)
Quarter: 2008Q2

REPORT INFORMATION
  Report Type: 
  Country: None (occurrence: None)
  Receive Date: 20080514
  Receipt Date: 20080514
  Transmission Date: 20081010
  Serious: Yes (Hospitalization, Disabling)
  Sender: FDA-Public Use
  Company Number: None

PATIENT
  Sex: Male
  Weight: 99.7913 kg

DRUGS (1)
  1. PHENYTOIN EX  100 MG  CARACO PHARMACEUTICAL - [Suspect]
     Indication: EPILEPSY
     Dosage: 600 MG DAILY PO
     Route: 048
     Dates: start: 20080414, end: 20080508

REACTIONS (7)
  - ANTICONVULSANT DRUG LEVEL INCREASED [None]
  - ARTHRALGIA [None]
  - DIZZINESS [None]
  - DYSARTHRIA [None]
  - NAUSEA [None]
  - PARAESTHESIA [None]
  - PHARMACEUTICAL PRODUCT COMPLAINT [None]
